FAERS Safety Report 10698198 (Version 1)
Quarter: 2014Q3

REPORT INFORMATION
  Report Type: Other
  Country: IT (occurrence: IT)
  Receive Date: 20140911
  Receipt Date: 20140911
  Transmission Date: 20150326
  Serious: Yes (Hospitalization)
  Sender: FDA-Public Use
  Company Number: IT-APOTEX-2014AP004527

PATIENT

DRUGS (4)
  1. FOSINOPRIL [Suspect]
     Active Substance: FOSINOPRIL
     Indication: HYPERTENSION
     Dosage: 20 MG, 4 TABLETS
     Route: 048
     Dates: start: 20140715
  2. ADALAT CRONO [Suspect]
     Active Substance: NIFEDIPINE
     Indication: HYPERTENSION
     Dosage: 20 MG, 5 TABLETS
     Route: 048
     Dates: start: 20140715
  3. CITALOPRAM HYDROBROMIDE. [Concomitant]
     Active Substance: CITALOPRAM HYDROBROMIDE
     Indication: PRODUCT USED FOR UNKNOWN INDICATION
     Dosage: 10 GTT, UNK
     Route: 065
  4. PLAVIX [Concomitant]
     Active Substance: CLOPIDOGREL BISULFATE
     Indication: PRODUCT USED FOR UNKNOWN INDICATION
     Route: 065

REACTIONS (2)
  - Medication error [Recovering/Resolving]
  - Hypotension [Recovering/Resolving]

NARRATIVE: CASE EVENT DATE: 20140715
